FAERS Safety Report 7160653-4 (Version None)
Quarter: 2010Q4

REPORT INFORMATION
  Report Type: 
  Country: None (occurrence: None)
  Receive Date: 20101214
  Receipt Date: 20091211
  Transmission Date: 20110411
  Serious: No
  Sender: FDA-Public Use
  Company Number: US-AMGEN-KDL379869

PATIENT

DRUGS (3)
  1. ENBREL [Suspect]
     Indication: ANKYLOSING SPONDYLITIS
     Dosage: 50 MG, QWK
     Dates: start: 20091003, end: 20091102
  2. ERGOCALCIFEROL [Concomitant]
     Dosage: UNK UNK, UNK
     Dates: start: 20090909
  3. PREDNISONE [Concomitant]
     Dosage: UNK UNK, UNK
     Dates: start: 20090918

REACTIONS (8)
  - CHILLS [None]
  - INJECTION SITE ERYTHEMA [None]
  - INJECTION SITE PRURITUS [None]
  - INJECTION SITE REACTION [None]
  - INJECTION SITE SWELLING [None]
  - INJECTION SITE URTICARIA [None]
  - INJECTION SITE WARMTH [None]
  - RASH [None]
